FAERS Safety Report 9883773 (Version 2)
Quarter: 2014Q3

REPORT INFORMATION
  Report Type: Spontaneous
  Country: US (occurrence: US)
  Receive Date: 20140210
  Receipt Date: 20140812
  Transmission Date: 20150326
  Serious: No
  Sender: FDA-Public Use
  Company Number: US-009507513-1402USA003482

PATIENT
  Sex: Female
  Weight: 68.27 kg

DRUGS (1)
  1. NUVARING [Suspect]
     Active Substance: ETHINYL ESTRADIOL\ETONOGESTREL
     Indication: PRODUCT USED FOR UNKNOWN INDICATION
     Dosage: UNK
     Route: 067
     Dates: start: 20080307, end: 20120405

REACTIONS (7)
  - Deep vein thrombosis [Unknown]
  - Wisdom teeth removal [Unknown]
  - Anxiety [Unknown]
  - Migraine [Unknown]
  - Factor V Leiden mutation [Unknown]
  - Tonsillectomy [Unknown]
  - Contusion [Unknown]

NARRATIVE: CASE EVENT DATE: 20120423
